FAERS Safety Report 21166342 (Version 6)
Quarter: 2023Q2

REPORT INFORMATION
  Report Type: Spontaneous
  Country: US (occurrence: US)
  Receive Date: 20220803
  Receipt Date: 20230412
  Transmission Date: 20230722
  Serious: No
  Sender: FDA-Public Use
  Company Number: US-BRISTOL-MYERS SQUIBB COMPANY-2022-084022

PATIENT
  Age: 77 Year
  Sex: Female

DRUGS (2)
  1. REVLIMID [Suspect]
     Active Substance: LENALIDOMIDE
     Indication: Plasma cell myeloma
     Dosage: FREQUENCY: OTHER
     Route: 048
     Dates: start: 20220630
  2. REVLIMID [Suspect]
     Active Substance: LENALIDOMIDE
     Dosage: 10 MILLIGRAM, OTHER
     Route: 048
     Dates: start: 202206

REACTIONS (11)
  - Hypoaesthesia [Unknown]
  - Medial tibial stress syndrome [Unknown]
  - Renal pain [Unknown]
  - Aphthous ulcer [Unknown]
  - Dysphagia [Unknown]
  - Oral pain [Unknown]
  - Swollen tongue [Unknown]
  - Pain in extremity [Unknown]
  - Weight decreased [Unknown]
  - Dizziness [Unknown]
  - Chest pain [Recovered/Resolved]

NARRATIVE: CASE EVENT DATE: 20220712
